FAERS Safety Report 4551885-X (Version None)
Quarter: 2005Q1

REPORT INFORMATION
  Report Type: 
  Country: None (occurrence: None)
  Receive Date: 20050107
  Receipt Date: 20041224
  Transmission Date: 20050727
  Serious: Yes (Hospitalization)
  Sender: FDA-Public Use
  Company Number: F01200200587

PATIENT
  Age: 63 Year
  Sex: Female

DRUGS (2)
  1. (OXALIPLATIN) - SOLUTION - 59 MG/M2 [Suspect]
     Indication: NEOPLASM MALIGNANT
     Dosage: 59 MG/M2 1/WEEK
     Route: 042
     Dates: start: 20020923, end: 20020923
  2. (CAPECITABINE) - TABLET - 750 MG/M2 [Suspect]
     Dosage: 1259 MG QD
     Route: 048
     Dates: start: 20020923, end: 20020927

REACTIONS (3)
  - IMPAIRED HEALING [None]
  - OPEN WOUND [None]
  - POST PROCEDURAL COMPLICATION [None]
